FAERS Safety Report 7714372-3 (Version None)
Quarter: 2011Q3

REPORT INFORMATION
  Report Type: 
  Country: None (occurrence: None)
  Receive Date: 20110829
  Receipt Date: 20110817
  Transmission Date: 20111222
  Serious: Yes (Hospitalization)
  Sender: FDA-Public Use
  Company Number: JP-ELI_LILLY_AND_COMPANY-JP201103001260

PATIENT
  Age: 80 Year
  Sex: Female

DRUGS (1)
  1. HUMALOG MIX 50/50 [Suspect]
     Indication: DIABETES MELLITUS
     Route: 058

REACTIONS (2)
  - DRUG EFFECT DECREASED [None]
  - HYPERGLYCAEMIA [None]
